FAERS Safety Report 14624097 (Version 1)
Quarter: 2018Q1

REPORT INFORMATION
  Report Type: Spontaneous
  Country: US (occurrence: US)
  Receive Date: 20180309
  Receipt Date: 20180309
  Transmission Date: 20180509
  Serious: Yes (Hospitalization)
  Sender: FDA-Public Use
  Company Number: None

PATIENT
  Age: 65 Year
  Weight: 61.65 kg

DRUGS (3)
  1. PRAVASTATIN. [Concomitant]
     Active Substance: PRAVASTATIN
  2. DARUNAVIR/COBICISTAT [Concomitant]
     Active Substance: COBICISTAT\DARUNAVIR ETHANOLATE
  3. VOSEVI [Suspect]
     Active Substance: SOFOSBUVIR\VELPATASVIR\VOXILAPREVIR
     Indication: HEPATITIS C
     Route: 048
     Dates: start: 20180131

REACTIONS (3)
  - Drug interaction [None]
  - Liver injury [None]
  - Rhabdomyolysis [None]

NARRATIVE: CASE EVENT DATE: 20180306
